FAERS Safety Report 9325236 (Version 2)
Quarter: 2013Q2

REPORT INFORMATION
  Report Type: Report from Study
  Country: US (occurrence: US)
  Receive Date: 20130604
  Receipt Date: 20130614
  Transmission Date: 20140414
  Serious: Yes (Death)
  Sender: FDA-Public Use
  Company Number: US-ROCHE-1231429

PATIENT
  Sex: Female

DRUGS (1)
  1. XELODA [Suspect]
     Indication: SMALL INTESTINE CARCINOMA
     Route: 048

REACTIONS (1)
  - Small intestine carcinoma metastatic [Fatal]
